FAERS Safety Report 10253556 (Version 4)
Quarter: 2014Q3

REPORT INFORMATION
  Report Type: Report from Study
  Country: US (occurrence: US)
  Receive Date: 20140623
  Receipt Date: 20140807
  Transmission Date: 20150326
  Serious: Yes (Hospitalization)
  Sender: FDA-Public Use
  Company Number: US-BAXTER-2014BAX032933

PATIENT
  Age: 10 Year
  Sex: Female
  Weight: 32 kg

DRUGS (11)
  1. CEPROTIN [Suspect]
     Active Substance: PROTEIN C
     Indication: PROTEIN C DEFICIENCY
     Route: 058
     Dates: start: 20140614, end: 20140614
  2. CEPROTIN [Suspect]
     Active Substance: PROTEIN C
     Route: 042
     Dates: start: 20140615, end: 20140615
  3. LOVENOX [Concomitant]
     Active Substance: ENOXAPARIN SODIUM
     Route: 058
     Dates: start: 20140611
  4. COUMADIN [Concomitant]
     Active Substance: WARFARIN SODIUM
     Route: 048
     Dates: start: 20111103
  5. COUMADIN [Concomitant]
     Active Substance: WARFARIN SODIUM
     Indication: PROTEIN C DEFICIENCY
     Route: 048
     Dates: start: 20101005
  6. COUMADIN [Concomitant]
     Active Substance: WARFARIN SODIUM
     Route: 048
     Dates: start: 20101005
  7. CEPROTIN [Suspect]
     Active Substance: PROTEIN C
     Route: 058
     Dates: start: 20140613, end: 20140613
  8. CEPROTIN [Suspect]
     Active Substance: PROTEIN C
     Route: 042
     Dates: start: 20140616, end: 20140616
  9. LOVENOX [Concomitant]
     Active Substance: ENOXAPARIN SODIUM
     Indication: PROTEIN C DEFICIENCY
     Route: 058
     Dates: start: 20120118
  10. LOVENOX [Concomitant]
     Active Substance: ENOXAPARIN SODIUM
     Dates: start: 20140531, end: 20140605
  11. TYLENOL WITH CODEINE [Concomitant]
     Active Substance: ACETAMINOPHEN\CODEINE PHOSPHATE
     Indication: PAIN
     Route: 048
     Dates: start: 20140602

REACTIONS (2)
  - Pain in extremity [Recovered/Resolved]
  - Abdominal pain [Recovered/Resolved]

NARRATIVE: CASE EVENT DATE: 20140615
